FAERS Safety Report 10061592 (Version 1)
Quarter: 2014Q2

REPORT INFORMATION
  Report Type: Spontaneous
  Country: SK (occurrence: SK)
  Receive Date: 20140407
  Receipt Date: 20140407
  Transmission Date: 20141212
  Serious: Yes (Death, Other)
  Sender: FDA-Public Use
  Company Number: SK-VERTEX PHARMACEUTICALS INC-2014-001802

PATIENT
  Sex: 0

DRUGS (1)
  1. INCIVO [Suspect]
     Indication: HEPATITIS C
     Dosage: UNK

REACTIONS (11)
  - Death [Fatal]
  - Dermatitis allergic [Unknown]
  - Infection [Unknown]
  - Liver disorder [Unknown]
  - Asthenia [Unknown]
  - Neutropenia [Unknown]
  - Renal impairment [Unknown]
  - Anaemia [Unknown]
  - Thrombocytopenia [Unknown]
  - Rash [Unknown]
  - Rash [Unknown]
